FAERS Safety Report 5781507-1 (Version None)
Quarter: 2008Q2

REPORT INFORMATION
  Report Type: 
  Country: None (occurrence: None)
  Receive Date: 20080623
  Receipt Date: 20080613
  Transmission Date: 20081010
  Serious: Yes (Other)
  Sender: FDA-Public Use
  Company Number: AU-KINGPHARMUSA00001-K200800676

PATIENT

DRUGS (1)
  1. EPIPEN [Suspect]
     Indication: ACCIDENTAL EXPOSURE
     Dosage: .3 MG, SINGLE
     Route: 050
     Dates: start: 20080514, end: 20080514

REACTIONS (3)
  - ACCIDENTAL EXPOSURE [None]
  - EMOTIONAL DISTRESS [None]
  - SKELETAL INJURY [None]
